FAERS Safety Report 8203538-4 (Version None)
Quarter: 2012Q1

REPORT INFORMATION
  Report Type: 
  Country: None (occurrence: None)
  Receive Date: 20120313
  Receipt Date: 20120306
  Transmission Date: 20120608
  Serious: No
  Sender: FDA-Public Use
  Company Number: US-BIOGENIDEC-2012BI008249

PATIENT
  Age: 52 Year
  Sex: Female

DRUGS (3)
  1. VITAMIN SUPPLEMENTS (NOS) [Concomitant]
     Indication: MICTURITION URGENCY
  2. TYSABRI [Suspect]
     Indication: MULTIPLE SCLEROSIS
     Route: 042
     Dates: start: 20120118
  3. BENADRYL [Concomitant]
     Indication: PRURITUS

REACTIONS (3)
  - ESCHERICHIA TEST POSITIVE [None]
  - PRURITUS [None]
  - RASH PAPULAR [None]
